FAERS Safety Report 9913626 (Version 1)
Quarter: 2014Q1

REPORT INFORMATION
  Report Type: Spontaneous
  Country: US (occurrence: US)
  Receive Date: 20140220
  Receipt Date: 20140220
  Transmission Date: 20141002
  Serious: Yes (Hospitalization)
  Sender: FDA-Public Use
  Company Number: US-JNJFOC-20140207108

PATIENT
  Age: 93 Year
  Sex: Female

DRUGS (3)
  1. DURAGESIC [Suspect]
     Indication: NEOPLASM MALIGNANT
     Route: 062
     Dates: start: 201401
  2. DURAGESIC [Suspect]
     Indication: PAIN
     Route: 062
     Dates: start: 201401
  3. OXYCONTIN [Concomitant]
     Route: 065

REACTIONS (2)
  - Infection [Not Recovered/Not Resolved]
  - Drug dose omission [Not Recovered/Not Resolved]
